FAERS Safety Report 24907789 (Version 1)
Quarter: 2025Q1

REPORT INFORMATION
  Report Type: Report from Study
  Country: CA (occurrence: CA)
  Receive Date: 20250131
  Receipt Date: 20250131
  Transmission Date: 20250409
  Serious: Yes (Death, Other)
  Sender: TAKEDA
  Company Number: CA-TAKEDA-2025TUS008966

PATIENT
  Age: 78 Year
  Sex: Male

DRUGS (3)
  1. FRUQUINTINIB [Suspect]
     Active Substance: FRUQUINTINIB
     Indication: Colorectal cancer metastatic
  2. HYDROMORPHONE [Concomitant]
     Active Substance: HYDROMORPHONE
  3. OCTREOTIDE [Concomitant]
     Active Substance: OCTREOTIDE

REACTIONS (5)
  - Death [Fatal]
  - Dysphagia [Unknown]
  - Speech disorder [Recovering/Resolving]
  - Mental disorder [Recovering/Resolving]
  - Emotional disorder [Recovering/Resolving]

NARRATIVE: CASE EVENT DATE: 20250127
